FAERS Safety Report 8065022-0 (Version None)
Quarter: 2012Q1

REPORT INFORMATION
  Report Type: 
  Country: None (occurrence: None)
  Receive Date: 20120124
  Receipt Date: 20120116
  Transmission Date: 20120608
  Serious: Yes (Other)
  Sender: FDA-Public Use
  Company Number: US-PAR PHARMACEUTICAL, INC-2011SCPR003561

PATIENT

DRUGS (11)
  1. PAMIDRONATE DISODIUM [Suspect]
     Indication: MULTIPLE MYELOMA
     Dosage: 90 MG, MONTHLY FOR 2 YEARS
     Route: 042
     Dates: end: 20020101
  2. MELPHALAN [Concomitant]
     Indication: MULTIPLE MYELOMA
     Dosage: UNK, UNKNOWN
     Route: 048
     Dates: start: 20080101
  3. MEDROL [Suspect]
     Indication: MULTIPLE MYELOMA
     Dosage: UNK UNK, UNKNOWN
     Route: 048
     Dates: start: 20050501, end: 20080401
  4. VINCRISTINE [Concomitant]
     Indication: MULTIPLE MYELOMA
     Dosage: 5 CYCLES, UNKNOWN
     Route: 042
  5. THALIDOMIDE [Concomitant]
     Indication: MULTIPLE MYELOMA
     Dosage: UNK, UNKNOWN
     Route: 065
     Dates: start: 20030601
  6. BORTEZOMIB [Concomitant]
     Indication: MULTIPLE MYELOMA
     Dosage: UNK, UNKNOWN
     Dates: start: 20080101
  7. ZOLEDRONIC ACID [Suspect]
     Indication: MULTIPLE MYELOMA
     Dosage: 4 MG, MONTHLY FOR 6 YEARS
     Route: 042
     Dates: start: 20020101
  8. CLARITHROMYCIN [Concomitant]
     Indication: MULTIPLE MYELOMA
     Dosage: UNK, UNKNOWN
     Route: 048
     Dates: start: 20070901
  9. DOXORUBICIN HCL [Concomitant]
     Indication: MULTIPLE MYELOMA
     Dosage: 5 CYCLES, UNKNOWN
     Route: 042
  10. DEXAMETHASONE TAB [Suspect]
     Indication: MULTIPLE MYELOMA
     Dosage: 5 CYCLES, UNKNOWN
     Route: 042
  11. PREDNISONE [Suspect]
     Indication: MULTIPLE MYELOMA
     Dosage: 50 MG, EVERY OTHER DAY
     Route: 048
     Dates: start: 20000101, end: 20030101

REACTIONS (2)
  - RIB FRACTURE [None]
  - STRESS FRACTURE [None]
